FAERS Safety Report 8353355-X (Version None)
Quarter: 2012Q2

REPORT INFORMATION
  Report Type: 
  Country: None (occurrence: None)
  Receive Date: 20120511
  Receipt Date: 20120507
  Transmission Date: 20120825
  Serious: Yes (Other)
  Sender: FDA-Public Use
  Company Number: PHHY2012CA012649

PATIENT
  Sex: Female

DRUGS (1)
  1. GILENYA [Suspect]
     Dosage: UNK UKN, UNK
     Dates: start: 20111117, end: 20120422

REACTIONS (13)
  - MUSCULOSKELETAL STIFFNESS [None]
  - MALAISE [None]
  - ODYNOPHAGIA [None]
  - ALOPECIA [None]
  - SKIN FRAGILITY [None]
  - LYMPHADENOPATHY [None]
  - HYPERAESTHESIA [None]
  - VOMITING [None]
  - LYMPHOCYTE COUNT DECREASED [None]
  - DIARRHOEA [None]
  - LYMPHADENITIS [None]
  - MIGRAINE [None]
  - RASH [None]
